FAERS Safety Report 14232040 (Version 4)
Quarter: 2018Q1

REPORT INFORMATION
  Report Type: Spontaneous
  Country: US (occurrence: US)
  Receive Date: 20171128
  Receipt Date: 20180222
  Transmission Date: 20180508
  Serious: Yes (Hospitalization, Other)
  Sender: FDA-Public Use
  Company Number: US-PFIZER INC-2017507145

PATIENT
  Age: 70 Year
  Sex: Female
  Weight: 54.42 kg

DRUGS (3)
  1. AMIODARONE HCL [Suspect]
     Active Substance: AMIODARONE HYDROCHLORIDE
     Indication: ATRIAL FIBRILLATION
     Dosage: UNK
     Route: 042
     Dates: start: 20110421, end: 20110429
  2. AMIODARONE HCL [Suspect]
     Active Substance: AMIODARONE HYDROCHLORIDE
     Indication: ATRIAL FIBRILLATION
     Dosage: UNK (PILL FORM)
     Route: 065
  3. LASIX [Suspect]
     Active Substance: FUROSEMIDE
     Indication: PULMONARY OEDEMA
     Dosage: UNK
     Route: 065

REACTIONS (8)
  - Pulmonary fibrosis [Not Recovered/Not Resolved]
  - Clostridium difficile infection [Unknown]
  - Toxicity to various agents [Not Recovered/Not Resolved]
  - Thrombosis [Unknown]
  - Blood pressure decreased [Unknown]
  - Dyspnoea [Not Recovered/Not Resolved]
  - Pneumonitis [Unknown]
  - Erythema [Unknown]

NARRATIVE: CASE EVENT DATE: 20110427
